FAERS Safety Report 13036021 (Version 2)
Quarter: 2017Q1

REPORT INFORMATION
  Report Type: Spontaneous
  Country: JP (occurrence: JP)
  Receive Date: 20161216
  Receipt Date: 20170308
  Transmission Date: 20170428
  Serious: Yes (Hospitalization, Other)
  Sender: FDA-Public Use
  Company Number: JP-JNJFOC-20161213676

PATIENT
  Age: 60 Year
  Sex: Male
  Weight: 68 kg

DRUGS (3)
  1. CANAGLIFLOZIN [Suspect]
     Active Substance: CANAGLIFLOZIN
     Indication: TYPE 2 DIABETES MELLITUS
     Route: 048
     Dates: start: 20160730
  2. URSO [Concomitant]
     Active Substance: URSODIOL
     Route: 048
     Dates: start: 20160417
  3. CANAGLIFLOZIN [Suspect]
     Active Substance: CANAGLIFLOZIN
     Indication: TYPE 2 DIABETES MELLITUS
     Route: 048
     Dates: start: 20160527, end: 20160714

REACTIONS (7)
  - Urine ketone body present [Recovered/Resolved]
  - Blood ketone body increased [Recovered/Resolved]
  - Urinary sediment present [Recovered/Resolved]
  - Pancreatitis acute [Recovered/Resolved]
  - White blood cells urine [Unknown]
  - Cholecystitis acute [Recovered/Resolved]
  - Protein urine present [Recovered/Resolved]

NARRATIVE: CASE EVENT DATE: 20160623
